FAERS Safety Report 14014828 (Version 2)
Quarter: 2017Q4

REPORT INFORMATION
  Report Type: Spontaneous
  Country: US (occurrence: US)
  Receive Date: 20170927
  Receipt Date: 20171122
  Transmission Date: 20180321
  Serious: Yes (Hospitalization, Other)
  Sender: FDA-Public Use
  Company Number: US-PFIZER INC-2017409332

PATIENT
  Age: 48 Year
  Sex: Female
  Weight: 77.98 kg

DRUGS (2)
  1. ELELYSO [Suspect]
     Active Substance: TALIGLUCERASE ALFA
     Dosage: 1400 IU, EVERY THREE WEEKS
     Route: 042
     Dates: start: 2017
  2. ELELYSO [Suspect]
     Active Substance: TALIGLUCERASE ALFA
     Indication: GAUCHER^S DISEASE
     Dosage: UNK, Q3 WEEKS
     Dates: start: 20170826, end: 2017

REACTIONS (6)
  - Nephrolithiasis [Recovered/Resolved]
  - Intentional product misuse [Unknown]
  - Kidney enlargement [Unknown]
  - Cough [Unknown]
  - Pain [Recovering/Resolving]
  - Product use issue [Unknown]

NARRATIVE: CASE EVENT DATE: 2017
